FAERS Safety Report 9964377 (Version 2)
Quarter: 2014Q1

REPORT INFORMATION
  Report Type: Spontaneous
  Country: CN (occurrence: CN)
  Receive Date: 20140305
  Receipt Date: 20140307
  Transmission Date: 20141002
  Serious: Yes (Other)
  Sender: FDA-Public Use
  Company Number: CN-PFIZER INC-2014062451

PATIENT
  Age: 40 Year
  Sex: Female

DRUGS (3)
  1. ZOLOFT [Suspect]
     Indication: DEPRESSION
     Dosage: 50 MG, ONE TO TWO TIMES DAILY
     Dates: start: 2003, end: 2013
  2. ZOLOFT [Suspect]
     Dosage: 50 MG, 3X/DAY
     Dates: start: 2013, end: 201402
  3. ZOLOFT [Suspect]
     Dosage: 50 MG, 1X/DAY
     Dates: start: 201402

REACTIONS (3)
  - Interstitial lung disease [Not Recovered/Not Resolved]
  - Intentional drug misuse [Unknown]
  - Malaise [Unknown]
